FAERS Safety Report 24757280 (Version 1)
Quarter: 2024Q4

REPORT INFORMATION
  Report Type: Spontaneous
  Country: US (occurrence: US)
  Receive Date: 20241220
  Receipt Date: 20241220
  Transmission Date: 20250114
  Serious: No
  Sender: STRIDES
  Company Number: US-STRIDES ARCOLAB LIMITED-2024SP012878

PATIENT
  Age: 25 Year

DRUGS (2)
  1. COLCHICINE [Suspect]
     Active Substance: COLCHICINE
     Indication: Myopericarditis
     Dosage: UNK
     Route: 065
  2. TESTOSTERONE [Concomitant]
     Active Substance: TESTOSTERONE
     Indication: Hormone therapy
     Dosage: UNK, ONCE A WEEK
     Route: 065

REACTIONS (1)
  - Off label use [Unknown]
